FAERS Safety Report 23684843 (Version 1)
Quarter: 2024Q1

REPORT INFORMATION
  Report Type: Spontaneous
  Country: US (occurrence: US)
  Receive Date: 20240328
  Receipt Date: 20240328
  Transmission Date: 20240410
  Serious: No
  Sender: FDA-Public Use
  Company Number: US-TPU-TPU-2024-00117

PATIENT
  Age: 66 Year
  Sex: Female

DRUGS (5)
  1. LIDODERM [Suspect]
     Active Substance: LIDOCAINE
     Indication: Joint injury
     Dates: start: 2022
  2. LIDODERM [Suspect]
     Active Substance: LIDOCAINE
     Indication: Spinal column injury
  3. CBD Cream [Concomitant]
  4. LIDOCAINE [Concomitant]
     Active Substance: LIDOCAINE
  5. SALONPAS PAIN RELIEF [Concomitant]
     Active Substance: MENTHOL\METHYL SALICYLATE

REACTIONS (3)
  - Coccydynia [Unknown]
  - Arthritis [Unknown]
  - Tenosynovitis stenosans [Unknown]

NARRATIVE: CASE EVENT DATE: 20221201
